FAERS Safety Report 9394225 (Version 1)
Quarter: 2013Q3

REPORT INFORMATION
  Report Type: Spontaneous
  Country: ES (occurrence: ES)
  Receive Date: 20130711
  Receipt Date: 20130711
  Transmission Date: 20140515
  Serious: Yes (Other)
  Sender: FDA-Public Use
  Company Number: ES-AMGEN-ESPSP2013048233

PATIENT
  Age: 59 Year
  Sex: Female

DRUGS (6)
  1. ENBREL [Suspect]
     Indication: RHEUMATOID ARTHRITIS
     Dosage: UNK
     Route: 065
     Dates: start: 201206, end: 201211
  2. ENBREL [Suspect]
     Dosage: UNK
     Route: 065
     Dates: end: 201302
  3. URBASON                            /00049601/ [Concomitant]
     Dosage: 4 MG, 1X/DAY
  4. METOJECT [Concomitant]
     Dosage: ON WEDNESDAYS AND SATURDAYS
  5. ACFOL [Concomitant]
     Dosage: 2 DF, 3 TIMES/WEEK, ON WEDNESDAYS, THURSDAYS AND FRIDAYS
     Route: 048
  6. CALCIUM [Concomitant]
     Dosage: 1 DF, 1X/DAY
     Route: 048

REACTIONS (2)
  - Intervertebral disc protrusion [Not Recovered/Not Resolved]
  - Pneumonia [Recovered/Resolved]
